FAERS Safety Report 6274956-9 (Version None)
Quarter: 2009Q3

REPORT INFORMATION
  Report Type: 
  Country: None (occurrence: None)
  Receive Date: 20090717
  Receipt Date: 20090707
  Transmission Date: 20100115
  Serious: Yes (Other)
  Sender: FDA-Public Use
  Company Number: GXKR2009TW07782

PATIENT
  Age: 59 Year
  Sex: Female

DRUGS (6)
  1. ZOLPIDEM [Suspect]
     Indication: BIPOLAR DISORDER
     Dosage: 600 MG
  2. ZOLPIDEM [Suspect]
     Indication: DEPRESSION
     Dosage: 600 MG
  3. QUETIAPINE FUMARATE [Suspect]
     Indication: BIPOLAR DISORDER
     Dosage: 800 MG ; UPTO 1600 MG ; UPTO 2400 MG (SELF-MEDICATION)
  4. QUETIAPINE FUMARATE [Suspect]
     Indication: DEPRESSION
     Dosage: 800 MG ; UPTO 1600 MG ; UPTO 2400 MG (SELF-MEDICATION)
  5. CLONAZEPAM [Suspect]
     Indication: BIPOLAR DISORDER
     Dosage: 20 MG
  6. CLONAZEPAM [Suspect]
     Indication: DEPRESSION
     Dosage: 20 MG

REACTIONS (11)
  - ANXIETY [None]
  - DRUG DEPENDENCE [None]
  - DRUG TOLERANCE [None]
  - INSOMNIA [None]
  - IRRITABILITY [None]
  - PALPITATIONS [None]
  - POOR QUALITY SLEEP [None]
  - RESTLESSNESS [None]
  - SOCIAL PROBLEM [None]
  - TREMOR [None]
  - WITHDRAWAL SYNDROME [None]
